FAERS Safety Report 14356090 (Version 1)
Quarter: 2018Q1

REPORT INFORMATION
  Report Type: Spontaneous
  Country: US (occurrence: US)
  Receive Date: 20180104
  Receipt Date: 20180104
  Transmission Date: 20180509
  Serious: Yes (Other)
  Sender: FDA-Public Use
  Company Number: None

PATIENT
  Age: 45 Year
  Sex: Male
  Weight: 90 kg

DRUGS (5)
  1. ALOXI [Suspect]
     Active Substance: PALONOSETRON HYDROCHLORIDE
  2. CISPLATIN. [Concomitant]
     Active Substance: CISPLATIN
  3. VARUBI [Suspect]
     Active Substance: ROLAPITANT
     Dosage: ?          OTHER FREQUENCY:1;?
     Route: 042
  4. GEMCITABINE [Concomitant]
     Active Substance: GEMCITABINE\GEMCITABINE HYDROCHLORIDE
  5. DEXAMETHASONE. [Suspect]
     Active Substance: DEXAMETHASONE

REACTIONS (5)
  - Hyperhidrosis [None]
  - Throat tightness [None]
  - Pallor [None]
  - Dyspnoea [None]
  - Infusion related reaction [None]

NARRATIVE: CASE EVENT DATE: 20171206
